FAERS Safety Report 5018832-8 (Version None)
Quarter: 2006Q2

REPORT INFORMATION
  Report Type: 
  Country: None (occurrence: None)
  Receive Date: 20060531
  Receipt Date: 20060516
  Transmission Date: 20061013
  Serious: Yes (Other)
  Sender: FDA-Public Use
  Company Number: 2006US000151

PATIENT
  Age: 38 Year
  Sex: Female

DRUGS (2)
  1. PROTOPIC [Suspect]
     Dosage: TOPICAL
     Route: 061
     Dates: start: 20021201
  2. ELIDEL [Suspect]
     Dates: start: 20021201

REACTIONS (2)
  - APPLICATION SITE REACTION [None]
  - BREAST CANCER [None]
